FAERS Safety Report 25953810 (Version 1)
Quarter: 2025Q4

REPORT INFORMATION
  Report Type: Spontaneous
  Country: US (occurrence: None)
  Receive Date: 20251023
  Receipt Date: 20251023
  Transmission Date: 20260118
  Serious: Yes (Hospitalization)
  Sender: FDA-CTU
  Company Number: None

PATIENT
  Sex: Male

DRUGS (2)
  1. ERLOTINIB [Suspect]
     Active Substance: ERLOTINIB
     Indication: Lung neoplasm malignant
     Dosage: 100 MG DAILY ORAL ?
     Route: 048
     Dates: start: 20250902
  2. ERLOTINIB [Suspect]
     Active Substance: ERLOTINIB
     Indication: Prostate cancer

REACTIONS (2)
  - Infection [None]
  - Immunodeficiency [None]
